FAERS Safety Report 7391853-6 (Version None)
Quarter: 2011Q2

REPORT INFORMATION
  Report Type: 
  Country: None (occurrence: None)
  Receive Date: 20110404
  Receipt Date: 20110329
  Transmission Date: 20111010
  Serious: Yes (Other)
  Sender: FDA-Public Use
  Company Number: DK-ROCHE-768308

PATIENT
  Sex: Female

DRUGS (1)
  1. ROACTEMRA [Suspect]
     Dosage: FORM: INFUSION
     Route: 065
     Dates: start: 20101215, end: 20110317

REACTIONS (3)
  - RASH [None]
  - ERYTHEMA [None]
  - PALPITATIONS [None]
